FAERS Safety Report 17768473 (Version 2)
Quarter: 2020Q2

REPORT INFORMATION
  Report Type: Report from Study
  Country: None (occurrence: NL)
  Receive Date: 20200511
  Receipt Date: 20200612
  Transmission Date: 20200714
  Serious: Yes (Disabling, Other)
  Sender: FDA-Public Use
  Company Number: NL-ABBVIE-20K-114-3399552-00

PATIENT
  Age: 72 Year
  Sex: Male
  Weight: 83.3 kg

DRUGS (7)
  1. DUODOPA [Suspect]
     Active Substance: CARBIDOPA\LEVODOPA
     Indication: PARKINSON^S DISEASE
     Dosage: MD 18.0, CD 6.4, ED 3.5
     Route: 050
     Dates: start: 20181029
  2. MOVICOLON [Concomitant]
     Active Substance: POLYETHYLENE GLYCOL 3350\POTASSIUM CHLORIDE\SODIUM BICARBONATE\SODIUM CHLORIDE
     Indication: ABNORMAL FAECES
  3. CARBIDOPA LEVODOPA RETARD [Concomitant]
     Indication: PRODUCT USED FOR UNKNOWN INDICATION
  4. LEVODOPA [Concomitant]
     Active Substance: LEVODOPA
     Indication: PARKINSON^S DISEASE
  5. MADOPAR DISPERSIBL [Concomitant]
     Active Substance: BENSERAZIDE HYDROCHLORIDE\LEVODOPA
     Indication: PRODUCT USED FOR UNKNOWN INDICATION
  6. SINEMET CR [Concomitant]
     Active Substance: CARBIDOPA\LEVODOPA
     Indication: PRODUCT USED FOR UNKNOWN INDICATION
  7. LACTULOSE. [Concomitant]
     Active Substance: LACTULOSE
     Indication: ABNORMAL FAECES

REACTIONS (17)
  - Hip fracture [Recovering/Resolving]
  - Fall [Recovered/Resolved]
  - Speech disorder [Unknown]
  - Nocturia [Unknown]
  - On and off phenomenon [Unknown]
  - Freezing phenomenon [Unknown]
  - Fear of falling [Not Recovered/Not Resolved]
  - Muscle rigidity [Unknown]
  - Insomnia [Unknown]
  - Dizziness postural [Unknown]
  - Gastrointestinal motility disorder [Recovering/Resolving]
  - Memory impairment [Unknown]
  - Fatigue [Unknown]
  - Balance disorder [Not Recovered/Not Resolved]
  - Tension [Unknown]
  - Cognitive disorder [Unknown]
  - Dyskinesia [Unknown]

NARRATIVE: CASE EVENT DATE: 202004
